FAERS Safety Report 9807801 (Version 2)
Quarter: 2014Q1

REPORT INFORMATION
  Report Type: Spontaneous
  Country: FR (occurrence: FR)
  Receive Date: 20140110
  Receipt Date: 20140218
  Transmission Date: 20141002
  Serious: Yes (Hospitalization)
  Sender: FDA-Public Use
  Company Number: FR-JNJFOC-20140101329

PATIENT
  Age: 72 Year
  Sex: Male

DRUGS (5)
  1. HALDOL [Suspect]
     Indication: DELIRIUM
     Route: 048
     Dates: start: 20131212, end: 20131212
  2. RISPERDAL [Suspect]
     Indication: DELIRIUM
     Route: 048
  3. RISPERDAL [Suspect]
     Indication: DELIRIUM
     Route: 048
     Dates: start: 20131213, end: 20131213
  4. ZYPREXA [Suspect]
     Indication: DELIRIUM
     Route: 048
     Dates: start: 20131207, end: 20131207
  5. LOXAPAC [Suspect]
     Indication: DELIRIUM
     Route: 048
     Dates: start: 20131208, end: 20131208

REACTIONS (6)
  - Parkinsonism [Recovered/Resolved]
  - Altered state of consciousness [Unknown]
  - Renal failure [Unknown]
  - Stupor [Unknown]
  - Off label use [Unknown]
  - Somnolence [Recovered/Resolved]
